FAERS Safety Report 4432116-8 (Version None)
Quarter: 2004Q3

REPORT INFORMATION
  Report Type: 
  Country: None (occurrence: None)
  Receive Date: 20040819
  Receipt Date: 20040806
  Transmission Date: 20050211
  Serious: Yes (Hospitalization)
  Sender: FDA-Public Use
  Company Number: 238225

PATIENT
  Sex: Male
  Weight: 3.5 kg

DRUGS (5)
  1. NOVORAPID PENFILL 3 ML (INSULIN ASPART) SOLUTION FOR INJECTION, 100U/M [Suspect]
     Indication: DIABETES MELLITUS INSULIN-DEPENDENT
     Dosage: 76 IU, QD, INTRAUTERINE
     Route: 015
     Dates: start: 20040108
  2. INSULATARD PENFILL (INSULIN HUMAN) SUSPENSION FOR INJECTION [Concomitant]
  3. LEVOTHYROXINE SODIUM [Concomitant]
  4. METHYLDOPA [Concomitant]
  5. ADALAT OROS (NIFEDIPNE) [Concomitant]

REACTIONS (2)
  - DRUG EXPOSURE DURING PREGNANCY [None]
  - HYPOGLYCAEMIA NEONATAL [None]
